FAERS Safety Report 9486557 (Version 1)
Quarter: 2013Q3

REPORT INFORMATION
  Report Type: Spontaneous
  Country: US (occurrence: None)
  Receive Date: 20130827
  Receipt Date: 20130827
  Transmission Date: 20140515
  Serious: Yes (Life-Threatening, Disabling)
  Sender: FDA-Public Use
  Company Number: None

PATIENT
  Age: 37 Year
  Sex: Female
  Weight: 83.92 kg

DRUGS (1)
  1. SINGULAIR [Suspect]
     Indication: MULTIPLE ALLERGIES
     Route: 048
     Dates: start: 20130604, end: 20130816

REACTIONS (7)
  - Irritability [None]
  - Agitation [None]
  - Depression [None]
  - Impatience [None]
  - Suicidal ideation [None]
  - Weight increased [None]
  - Impaired work ability [None]
